FAERS Safety Report 10908895 (Version 1)
Quarter: 2015Q1

REPORT INFORMATION
  Report Type: Spontaneous
  Country: US (occurrence: US)
  Receive Date: 20150312
  Receipt Date: 20150312
  Transmission Date: 20150721
  Serious: Yes (Hospitalization)
  Sender: FDA-Public Use
  Company Number: US-MERZ NORTH AMERICA, INC.-15MRZ-00097

PATIENT
  Sex: Female
  Weight: 56.75 kg

DRUGS (9)
  1. MULTI VITAMIN [Concomitant]
     Active Substance: VITAMINS
     Indication: VITAMIN SUPPLEMENTATION
     Dosage: 1 DAILY SUPPLEMENT
  2. LYRICA [Concomitant]
     Active Substance: PREGABALIN
     Indication: FIBROMYALGIA
     Dosage: UNKNOWN
  3. XEOMIN [Suspect]
     Active Substance: INCOBOTULINUMTOXINA
     Indication: SKIN WRINKLING
     Dosage: 14 RIGHT CROW^S FEET?12 LEFT CROW^S FEET
     Route: 030
     Dates: start: 201405
  4. PROTONIX [Concomitant]
     Active Substance: PANTOPRAZOLE SODIUM
     Indication: IRRITABLE BOWEL SYNDROME
     Route: 048
  5. XEOMIN [Suspect]
     Active Substance: INCOBOTULINUMTOXINA
     Indication: FACE LIFT
     Route: 030
     Dates: start: 201405
  6. ACICLOVIR [Concomitant]
     Active Substance: ACYCLOVIR
     Indication: NEUROPATHY PERIPHERAL
     Dosage: UNKNOWN
  7. RELPAX [Concomitant]
     Active Substance: ELETRIPTAN HYDROBROMIDE
     Indication: MIGRAINE
     Dosage: UNKNOWN/PRN
  8. CLONIDINE. [Concomitant]
     Active Substance: CLONIDINE
     Indication: BLOOD PRESSURE
     Dosage: DAILY
     Route: 048
  9. XEOMIN [Suspect]
     Active Substance: INCOBOTULINUMTOXINA
     Indication: SKIN WRINKLING
     Route: 030
     Dates: start: 201405

REACTIONS (12)
  - Headache [None]
  - Ocular discomfort [None]
  - Abdominal discomfort [None]
  - Bladder disorder [None]
  - Gait disturbance [None]
  - Pain in extremity [None]
  - Abasia [None]
  - Off label use [None]
  - Asthenopia [None]
  - Abdominal pain [None]
  - Burning sensation [None]
  - Rash [None]
